FAERS Safety Report 5067913-1 (Version None)
Quarter: 2006Q3

REPORT INFORMATION
  Report Type: 
  Country: None (occurrence: None)
  Receive Date: 20060728
  Receipt Date: 20060710
  Transmission Date: 20061208
  Serious: Yes (Other)
  Sender: FDA-Public Use
  Company Number: BR200607002661

PATIENT
  Age: 68 Year
  Sex: Female

DRUGS (1)
  1. ALIMTA [Suspect]
     Indication: LUNG NEOPLASM
     Dosage: 500 MG/M2, INTRAVENOUS
     Route: 042
     Dates: start: 20060302

REACTIONS (2)
  - CONJUNCTIVITIS [None]
  - ULCERATIVE KERATITIS [None]
